FAERS Safety Report 16425571 (Version 3)
Quarter: 2019Q2

REPORT INFORMATION
  Report Type: Spontaneous
  Country: US (occurrence: US)
  Receive Date: 20190613
  Receipt Date: 20190628
  Transmission Date: 20190711
  Serious: No
  Sender: FDA-Public Use
  Company Number: US-PFIZER INC-2019251439

PATIENT
  Age: 50 Year
  Sex: Male
  Weight: 172.36 kg

DRUGS (2)
  1. CAVERJECT [Suspect]
     Active Substance: ALPROSTADIL
     Dosage: 72 UG, UNK
  2. CAVERJECT [Suspect]
     Active Substance: ALPROSTADIL
     Indication: ERECTILE DYSFUNCTION
     Dosage: START WITH 0.1 MG, THEN INCREASE IT BY 0.1 MG EVERY DAY UNTIL HE RECEIVED THE DESIRED OUTCOME
     Dates: start: 20190524

REACTIONS (2)
  - Drug ineffective [Not Recovered/Not Resolved]
  - Off label use [Unknown]

NARRATIVE: CASE EVENT DATE: 20190524
